FAERS Safety Report 23958058 (Version 1)
Quarter: 2024Q2

REPORT INFORMATION
  Report Type: Spontaneous
  Country: US (occurrence: None)
  Receive Date: 20240609
  Receipt Date: 20240609
  Transmission Date: 20240715
  Serious: Yes (Life-Threatening, Hospitalization)
  Sender: FDA-Public Use
  Company Number: None

PATIENT
  Age: 29 Year
  Sex: Female

DRUGS (1)
  1. CYTOTEC [Suspect]
     Active Substance: MISOPROSTOL
     Indication: Labour induction
     Dates: start: 20240601, end: 20240602

REACTIONS (5)
  - Off label use [None]
  - Wrong technique in product usage process [None]
  - Uterine contractions abnormal [None]
  - Heart rate decreased [None]
  - Mobility decreased [None]

NARRATIVE: CASE EVENT DATE: 20240602
